FAERS Safety Report 8994377 (Version 1)
Quarter: 2012Q4

REPORT INFORMATION
  Report Type: Spontaneous
  Country: US (occurrence: None)
  Receive Date: 20121227
  Receipt Date: 20121227
  Transmission Date: 20130627
  Serious: Yes (Other)
  Sender: FDA-Public Use
  Company Number: None

PATIENT
  Sex: Female
  Weight: 47.63 kg

DRUGS (8)
  1. ATRIPLA [Suspect]
     Indication: HIV INFECTION
     Dosage: 1 tablet q d po
     Route: 048
  2. ISENTRESS [Concomitant]
  3. EPZICOM [Concomitant]
  4. LIPITOR [Concomitant]
  5. LISINOPRIL [Concomitant]
  6. ZETIA [Concomitant]
  7. AMITRIPTYLINE [Concomitant]
  8. TRAVATAN Z [Concomitant]

REACTIONS (1)
  - Renal disorder [None]
